FAERS Safety Report 5631139-0 (Version None)
Quarter: 2008Q1

REPORT INFORMATION
  Report Type: 
  Country: None (occurrence: None)
  Receive Date: 20080219
  Receipt Date: 20080218
  Transmission Date: 20080703
  Serious: Yes (Hospitalization)
  Sender: FDA-Public Use
  Company Number: ES-BOEHRINGER INGELHEIM GMBH, GERMANY-2008-DE-01027GD

PATIENT
  Age: 55 Year
  Sex: Female

DRUGS (2)
  1. CALCIUM CARBONATE [Suspect]
  2. ANTACID TAB [Suspect]

REACTIONS (8)
  - ANOREXIA [None]
  - BEZOAR [None]
  - BLOOD ALBUMIN DECREASED [None]
  - HYPOTENSION [None]
  - MALNUTRITION [None]
  - NAUSEA [None]
  - PROTEIN TOTAL DECREASED [None]
  - VOMITING [None]
